FAERS Safety Report 16179230 (Version 1)
Quarter: 2019Q2

REPORT INFORMATION
  Report Type: Spontaneous
  Country: US (occurrence: US)
  Receive Date: 20190410
  Receipt Date: 20190410
  Transmission Date: 20190711
  Serious: No
  Sender: FDA-Public Use
  Company Number: US-BAYER-2019-071995

PATIENT
  Sex: Female

DRUGS (2)
  1. CLARITIN [Suspect]
     Active Substance: LORATADINE
     Indication: HYPERSENSITIVITY
     Dosage: 1 DF, QD
     Route: 047
     Dates: start: 20190408
  2. CLARITIN [Suspect]
     Active Substance: LORATADINE
     Indication: NASOPHARYNGITIS

REACTIONS (5)
  - Therapeutic product effect incomplete [Unknown]
  - Rhinorrhoea [Unknown]
  - Sneezing [Unknown]
  - Somnolence [None]
  - Throat irritation [Unknown]

NARRATIVE: CASE EVENT DATE: 20190409
